FAERS Safety Report 7399165-1 (Version None)
Quarter: 2011Q2

REPORT INFORMATION
  Report Type: 
  Country: None (occurrence: None)
  Receive Date: 20110407
  Receipt Date: 20110329
  Transmission Date: 20111010
  Serious: Yes (Life-Threatening, Hospitalization)
  Sender: FDA-Public Use
  Company Number: FR-BRISTOL-MYERS SQUIBB COMPANY-15527799

PATIENT
  Age: 47 Year
  Sex: Female

DRUGS (4)
  1. COVERSYL [Concomitant]
     Indication: HYPERTENSION
     Dates: end: 20110101
  2. OROMONE [Concomitant]
     Indication: MENOPAUSE
     Dosage: 1 DF = 1 TABS
     Route: 048
     Dates: end: 20110123
  3. IRBESARTAN AND HYDROCHLOROTHIAZIDE [Suspect]
     Indication: HYPERTENSION
     Dosage: FILM COATED 100MG TABS
     Route: 048
     Dates: start: 20110114, end: 20110123
  4. LUTENYL [Concomitant]
     Indication: UTERINE LEIOMYOMA
     Dosage: 1 DF = 1 TABS:20DYS/MONTH
     Route: 048
     Dates: end: 20110123

REACTIONS (3)
  - MALAISE [None]
  - CARDIO-RESPIRATORY ARREST [None]
  - CORONARY OSTIAL STENOSIS [None]
